FAERS Safety Report 13196327 (Version 8)
Quarter: 2019Q3

REPORT INFORMATION
  Report Type: Spontaneous
  Country: US (occurrence: US)
  Receive Date: 20170208
  Receipt Date: 20190710
  Transmission Date: 20191004
  Serious: No
  Sender: FDA-Public Use
  Company Number: US-PFIZER INC-2017054584

PATIENT
  Age: 66 Year
  Sex: Female
  Weight: 104 kg

DRUGS (4)
  1. LYRICA [Suspect]
     Active Substance: PREGABALIN
     Indication: INTERVERTEBRAL DISC DEGENERATION
     Dosage: 75 MG, 3X/DAY (MORNING, NOON, EVENING)
     Route: 048
  2. LYRICA [Suspect]
     Active Substance: PREGABALIN
     Dosage: 250 MG, UNK
  3. TRAMADOL. [Concomitant]
     Active Substance: TRAMADOL
     Dosage: 0.25 MG, UNK
  4. LYRICA [Suspect]
     Active Substance: PREGABALIN
     Indication: NEURALGIA
     Dosage: 150 MG, 2X/DAY

REACTIONS (13)
  - Hypokinesia [Unknown]
  - Drug ineffective [Unknown]
  - Bronchitis [Unknown]
  - Sciatica [Unknown]
  - Pain [Unknown]
  - Spinal pain [Unknown]
  - Weight decreased [Unknown]
  - Weight increased [Unknown]
  - Intentional product use issue [Unknown]
  - Fibromyalgia [Unknown]
  - Gait disturbance [Unknown]
  - Musculoskeletal stiffness [Unknown]
  - Injection site haemorrhage [Unknown]
